FAERS Safety Report 9304363 (Version 1)
Quarter: 2013Q2

REPORT INFORMATION
  Report Type: Spontaneous
  Country: CA (occurrence: CA)
  Receive Date: 20130522
  Receipt Date: 20130522
  Transmission Date: 20140414
  Serious: Yes (Other)
  Sender: FDA-Public Use
  Company Number: CA-GILEAD-2013-0074209

PATIENT
  Age: 55 Year
  Sex: Female

DRUGS (42)
  1. AMBRISENTAN [Suspect]
     Indication: PULMONARY ARTERIAL HYPERTENSION
     Dosage: 5MG PER DAY
     Route: 048
     Dates: start: 20130227, end: 201304
  2. AMBRISENTAN [Suspect]
     Dosage: 10 UNK, UNK
     Route: 048
     Dates: start: 201304, end: 20130416
  3. CARBAMAZEPINE [Concomitant]
     Dosage: 200MG THREE TIMES PER DAY
  4. SENOKOT                            /00142201/ [Concomitant]
  5. LASIX                              /00032601/ [Concomitant]
     Dosage: 80 MG, QD
  6. GABAPENTIN [Concomitant]
     Dosage: 1600MG TWICE PER DAY
  7. MIRTAZAPINE [Concomitant]
  8. DILAUDID [Concomitant]
  9. PANTOPRAZOLE [Concomitant]
     Dosage: 40MG TWICE PER DAY
  10. LORAZEPAM [Concomitant]
  11. TADALAFIL [Concomitant]
     Dosage: 40MG PER DAY
  12. ADVAIR [Concomitant]
     Dosage: 500MCG TWICE PER DAY
  13. VITAMIN B12                        /00056201/ [Concomitant]
  14. VENTOLIN                           /00139501/ [Concomitant]
  15. TRAZODONE [Concomitant]
     Dosage: 50MG PER DAY
  16. WARFARIN [Concomitant]
  17. PULMICORT [Concomitant]
  18. ASMANEX [Concomitant]
  19. OXYGEN [Concomitant]
  20. SLOW K [Concomitant]
     Dosage: 7TAB TWICE PER DAY
  21. ATACAND [Concomitant]
     Dosage: 8MG PER DAY
  22. DILTIAZEM [Concomitant]
     Dosage: 240MG PER DAY
  23. ACCOLATE [Concomitant]
     Dosage: 20MG TWICE PER DAY
  24. NASONEX [Concomitant]
     Dosage: 50UG TWICE PER DAY
  25. POLYETHYLENE GLYCOL [Concomitant]
     Dosage: 17DR PER DAY
  26. XOLAIR [Concomitant]
  27. REACTINE                           /00884302/ [Concomitant]
     Dosage: 10MG PER DAY
  28. EPIPEN [Concomitant]
     Dosage: UNK, PRN
  29. DOMPERIDONE [Concomitant]
     Dosage: 20MG THREE TIMES PER DAY
  30. NEXIUM                             /01479302/ [Concomitant]
     Dosage: 40MG TWICE PER DAY
  31. ZOFRAN                             /00955302/ [Concomitant]
     Dosage: 8MG THREE TIMES PER DAY
  32. RANITIDINE [Concomitant]
     Dosage: 300MG PER DAY
  33. COLACE [Concomitant]
     Dosage: 100MG PER DAY
  34. MAXERAN [Concomitant]
     Dosage: 10MG SEE DOSAGE TEXT
     Route: 058
  35. CALCIUM [Concomitant]
     Dosage: 650MG PER DAY
  36. VIT D [Concomitant]
     Dosage: 1000IU PER DAY
  37. PEG 3350 GRX [Concomitant]
     Dosage: 17GR PER DAY
  38. VENLAFAXINE [Concomitant]
     Dosage: 75MG PER DAY
  39. FENTANYL [Concomitant]
  40. METHADONE [Concomitant]
     Dosage: 10MG PER DAY
  41. CODEINE [Concomitant]
     Dosage: UNK, PRN
  42. PREDNISONE [Concomitant]

REACTIONS (1)
  - Headache [Recovering/Resolving]
